FAERS Safety Report 25741875 (Version 1)
Quarter: 2025Q3

REPORT INFORMATION
  Report Type: Spontaneous
  Country: US (occurrence: US)
  Receive Date: 20250829
  Receipt Date: 20250829
  Transmission Date: 20251020
  Serious: No
  Sender: PFIZER
  Company Number: US-PFIZER INC-202500171296

PATIENT
  Age: 78 Year
  Sex: Female
  Weight: 64.86 kg

DRUGS (10)
  1. LEVOXYL [Suspect]
     Active Substance: LEVOTHYROXINE SODIUM
     Indication: Goitre
     Dates: start: 2023
  2. LEVOXYL [Suspect]
     Active Substance: LEVOTHYROXINE SODIUM
  3. LEVOXYL [Suspect]
     Active Substance: LEVOTHYROXINE SODIUM
  4. LEVOXYL [Suspect]
     Active Substance: LEVOTHYROXINE SODIUM
     Dates: start: 202402
  5. LEVOXYL [Suspect]
     Active Substance: LEVOTHYROXINE SODIUM
     Dates: end: 20250826
  6. KLOR-CON [Concomitant]
     Active Substance: POTASSIUM CHLORIDE
     Indication: Cardiac disorder
     Dosage: 10 MG, ALTERNATE DAY (TAKING SINCE 1999 OR 2000)
  7. LOSARTAN [Concomitant]
     Active Substance: LOSARTAN
     Indication: Blood pressure abnormal
     Dosage: 50 MG, ALTERNATE DAY (TAKING SINCE 1999 OR 2000)
  8. LOSARTAN [Concomitant]
     Active Substance: LOSARTAN
     Indication: Cardiac disorder
  9. FUROSEMIDE [Concomitant]
     Active Substance: FUROSEMIDE
     Indication: Cardiac disorder
     Dosage: 40 MG, ALTERNATE DAY
  10. SPIRONOLACTONE [Concomitant]
     Active Substance: SPIRONOLACTONE
     Indication: Cardiac disorder
     Dosage: 25 MG, 1X/DAY (TAKING SINCE 1999 OR 2000)

REACTIONS (6)
  - Bradykinesia [Recovering/Resolving]
  - Paraesthesia [Unknown]
  - Sluggishness [Unknown]
  - Musculoskeletal stiffness [Unknown]
  - Recalled product administered [Unknown]
  - Off label use [Unknown]

NARRATIVE: CASE EVENT DATE: 20240101
